FAERS Safety Report 7960852-5 (Version None)
Quarter: 2011Q4

REPORT INFORMATION
  Report Type: 
  Country: None (occurrence: None)
  Receive Date: 20111207
  Receipt Date: 20111124
  Transmission Date: 20120403
  Serious: Yes (Hospitalization)
  Sender: FDA-Public Use
  Company Number: DE-RANBAXY-2011RR-50731

PATIENT
  Age: 54 Year
  Sex: Female
  Weight: 53 kg

DRUGS (3)
  1. IBUPROFEN [Suspect]
     Indication: ARTHRITIS
     Dosage: 600 MG, PRN
     Route: 048
  2. IBUPROFEN [Suspect]
     Indication: PAIN
  3. COTRIM DS [Suspect]
     Indication: URINARY TRACT INFECTION
     Dosage: 960 MG/DAY
     Route: 048
     Dates: start: 20110513, end: 20110515

REACTIONS (1)
  - HEPATITIS ACUTE [None]
